FAERS Safety Report 8767150 (Version 2)
Quarter: 2012Q4

REPORT INFORMATION
  Report Type: 
  Country: US (occurrence: US)
  Receive Date: 20120904
  Receipt Date: 20120910
  Transmission Date: 20130627
  Serious: Yes (Death, Hospitalization, Other)
  Sender: FDA-Public Use
  Company Number: US-ALEXION PHARMACEUTICALS INC.-A201201616

PATIENT
  Age: 21 Year
  Sex: Female
  Weight: 42.31 kg

DRUGS (9)
  1. SOLIRIS 300MG [Suspect]
     Indication: PAROXYSMAL NOCTURNAL HAEMOGLOBINURIA
     Dosage: 600 mg, qw
     Route: 042
     Dates: start: 20090929, end: 20091023
  2. CONTRACEPTIVES NOS [Concomitant]
     Indication: CONTRACEPTION
     Dosage: 1 DF, qd
     Route: 048
     Dates: end: 20120820
  3. LYRICA [Concomitant]
     Indication: NEURALGIA
     Dosage: 75 mg, qd
     Route: 048
     Dates: end: 20120820
  4. PRILOSEC [Concomitant]
     Indication: GASTROOESOPHAGEAL REFLUX DISEASE
     Dosage: 20 mg, qd
     Route: 048
     Dates: end: 20120820
  5. NORCO [Concomitant]
     Indication: PAIN
     Dosage: 10 mg/325 PRN
     Route: 048
     Dates: end: 20120820
  6. MAGNESIUM [Concomitant]
     Indication: MINERAL SUPPLEMENTATION
     Dosage: 400 mg, bid
     Route: 048
     Dates: end: 20120820
  7. ZOFRAN [Concomitant]
     Indication: NAUSEA
     Dosage: 4 mg, prn
     Route: 060
     Dates: end: 20120820
  8. DITROPAN [Concomitant]
     Indication: HYPERTONIC BLADDER
     Dosage: 5 mg, prn
     Route: 048
     Dates: end: 20120820
  9. URAL [Concomitant]
     Indication: DYSURIA
     Dosage: 1 mg, tid
     Route: 048
     Dates: end: 20120820

REACTIONS (5)
  - Multi-organ failure [Fatal]
  - Disseminated intravascular coagulation [Fatal]
  - Intestinal dilatation [Unknown]
  - Ascites [Unknown]
  - Abdominal pain [Not Recovered/Not Resolved]
